FAERS Safety Report 14266516 (Version 4)
Quarter: 2021Q1

REPORT INFORMATION
  Report Type: Other
  Country: ES (occurrence: ES)
  Receive Date: 20171211
  Receipt Date: 20210119
  Transmission Date: 20210419
  Serious: Yes (Hospitalization, Other)
  Sender: FDA-Public Use
  Company Number: ES-MACLEODS PHARMACEUTICALS US LTD-MAC2017006451

PATIENT

DRUGS (26)
  1. VALSARTAN. [Suspect]
     Active Substance: VALSARTAN
     Indication: ACUTE MYOCARDIAL INFARCTION
     Dosage: 1 MILLIGRAM, QD
     Route: 048
     Dates: start: 20170505
  2. AMIODARONE HYDROCHLORIDE. [Concomitant]
     Active Substance: AMIODARONE HYDROCHLORIDE
     Indication: ARRHYTHMIA PROPHYLAXIS
     Dosage: 200 MILLIGRAM, QD
     Route: 048
     Dates: start: 20170511
  3. BISOPROLOL [Concomitant]
     Active Substance: BISOPROLOL
     Indication: ANGINA PECTORIS
  4. ESPIRONOLACTON [Concomitant]
     Active Substance: SPIRONOLACTONE
     Indication: MYOCARDIAL INFARCTION
     Dosage: 25 MG, QD
     Route: 048
     Dates: start: 20170504
  5. GLICLAZIDE [Concomitant]
     Active Substance: GLICLAZIDE
     Indication: TYPE 2 DIABETES MELLITUS
     Dosage: 30 MG, QD
     Route: 048
     Dates: start: 20141001
  6. RAMIPRIL. [Suspect]
     Active Substance: RAMIPRIL
     Dosage: UNK, TABLET
     Route: 048
     Dates: start: 20170505
  7. METFORMIN HYDROCHLORIDE. [Concomitant]
     Active Substance: METFORMIN HYDROCHLORIDE
     Indication: TYPE 2 DIABETES MELLITUS
     Dosage: 850 MILLIGRAM, QD
     Route: 048
     Dates: start: 20080207
  8. ACENOCOUMAROL [Concomitant]
     Active Substance: ACENOCOUMAROL
     Indication: ATRIAL FIBRILLATION
     Dosage: 4 MILLIGRAM, QOD (EVERY OTHER DAY)
     Route: 048
     Dates: start: 20170511
  9. SPIRIVA [Concomitant]
     Active Substance: TIOTROPIUM BROMIDE MONOHYDRATE
     Indication: PROPHYLAXIS
     Dosage: 18 ?G, QD
     Route: 048
     Dates: start: 20141130
  10. CLOPIDOGREL [Suspect]
     Active Substance: CLOPIDOGREL BISULFATE
     Indication: ANTICOAGULANT THERAPY
     Dosage: 75 MILLIGRAM, QD
     Route: 048
     Dates: start: 20170504, end: 20170504
  11. RAMIPRIL. [Suspect]
     Active Substance: RAMIPRIL
     Indication: PRODUCT USED FOR UNKNOWN INDICATION
     Dosage: UNK UNK, QD
     Route: 048
     Dates: start: 20170505
  12. SACUBITRIL/ VALSARTAN [Suspect]
     Active Substance: SACUBITRIL\VALSARTAN
     Dosage: UNK UNK, QD
     Route: 048
     Dates: start: 20170505
  13. BLINDED NO TREATMENT RECEIVED [Suspect]
     Active Substance: INVESTIGATIONAL PRODUCT
     Indication: ACUTE MYOCARDIAL INFARCTION
     Dosage: UNK, CODE NOT BROKEN
     Route: 048
     Dates: start: 20170505
  14. ACENOCOUMAROL [Concomitant]
     Active Substance: ACENOCOUMAROL
     Indication: ATRIAL FIBRILLATION
  15. OMEPRAZOLE. [Concomitant]
     Active Substance: OMEPRAZOLE
     Indication: PROPHYLAXIS AGAINST GASTROINTESTINAL ULCER
     Dosage: 20 MILLIGRAM, QD
     Route: 048
     Dates: start: 20080207
  16. FUROSEMIDE. [Concomitant]
     Active Substance: FUROSEMIDE
     Indication: HYPERTENSION
     Dosage: 20 MG, QD
     Route: 048
     Dates: start: 20170512
  17. TIOTROPIUM BROMIDE [Concomitant]
     Active Substance: TIOTROPIUM BROMIDE
     Indication: PROPHYLAXIS
     Dosage: 18 MICROGRAM, QD
     Route: 048
     Dates: start: 20141130
  18. ASPIRIN 100 MG [Suspect]
     Active Substance: ASPIRIN
     Indication: PRODUCT USED FOR UNKNOWN INDICATION
     Dosage: 100 MG, QD
     Route: 048
     Dates: start: 20170207
  19. TAMSULOSIN [Concomitant]
     Active Substance: TAMSULOSIN
     Indication: URINARY TRACT DISORDER
     Dosage: 0.4 MILLIGRAM, QD
     Route: 048
     Dates: start: 20170512
  20. SACUBITRIL/ VALSARTAN [Suspect]
     Active Substance: SACUBITRIL\VALSARTAN
     Indication: ACUTE MYOCARDIAL INFARCTION
     Dosage: UNK, CODE NOT BROKEN
     Route: 048
     Dates: start: 20170505
  21. PITAVASTATIN. [Concomitant]
     Active Substance: PITAVASTATIN CALCIUM
     Indication: HYPERCHOLESTEROLAEMIA
     Dosage: 4 MG, QD
     Route: 048
     Dates: start: 20170512
  22. CLOPIDOGREL [Suspect]
     Active Substance: CLOPIDOGREL BISULFATE
     Indication: ISCHAEMIC CARDIOMYOPATHY
     Dosage: 100 MILLIGRAM, QD
     Route: 048
     Dates: start: 20170505
  23. BISOPROLOL [Concomitant]
     Active Substance: BISOPROLOL
     Indication: ISCHAEMIC CARDIOMYOPATHY
     Dosage: 3 MG, QD
     Route: 048
     Dates: start: 20170504
  24. LORAZEPAM. [Concomitant]
     Active Substance: LORAZEPAM
     Indication: ANXIOLYTIC THERAPY
     Dosage: 1 MILLIGRAM, QD
     Route: 048
     Dates: start: 20170501
  25. SODIUM CHLORIDE SOLUTION [Concomitant]
     Active Substance: SODIUM CHLORIDE
     Indication: PRODUCT USED FOR UNKNOWN INDICATION
     Dosage: UNK
     Route: 065
     Dates: start: 20170501
  26. SODIUM CHLORIDE SOLUTION [Concomitant]
     Active Substance: SODIUM CHLORIDE
     Dosage: 1000 MILLILITER
     Route: 042
     Dates: start: 20170531, end: 20170531

REACTIONS (1)
  - Haematuria [Recovered/Resolved]

NARRATIVE: CASE EVENT DATE: 20170515
